FAERS Safety Report 6300155-8 (Version None)
Quarter: 2009Q3

REPORT INFORMATION
  Report Type: 
  Country: None (occurrence: None)
  Receive Date: 20090806
  Receipt Date: 20090724
  Transmission Date: 20100115
  Serious: Yes (Death, Other)
  Sender: FDA-Public Use
  Company Number: HQWYE968404SEP07

PATIENT
  Sex: Male
  Weight: 56 kg

DRUGS (9)
  1. TACROLIMUS [Suspect]
     Indication: PROPHYLAXIS AGAINST TRANSPLANT REJECTION
     Dosage: UNSPECIFIED
     Dates: start: 20070406, end: 20070613
  2. TACROLIMUS [Suspect]
     Dates: start: 20070613, end: 20070813
  3. ATENOLOL [Concomitant]
     Indication: HYPERTENSION
     Dosage: UNSPECIFIED
     Dates: start: 20070627
  4. SIMVASTATIN [Interacting]
     Indication: HYPERCHOLESTEROLAEMIA
     Dosage: UNSPECIFIED
     Dates: start: 20070710
  5. SIMVASTATIN [Interacting]
     Indication: HYPERTRIGLYCERIDAEMIA
  6. MYCOPHENOLATE MOFETIL [Concomitant]
     Indication: PROPHYLAXIS AGAINST TRANSPLANT REJECTION
     Dates: start: 20070406, end: 20070613
  7. MYCOPHENOLATE MOFETIL [Concomitant]
     Dates: start: 20070613, end: 20070630
  8. RAPAMUNE [Interacting]
     Indication: PROPHYLAXIS AGAINST TRANSPLANT REJECTION
     Route: 048
     Dates: start: 20070630, end: 20070815
  9. ENALAPRIL MALEATE [Concomitant]
     Indication: HYPERTENSION
     Dosage: UNSPECIFIED
     Dates: start: 20070627

REACTIONS (2)
  - DRUG INTERACTION [None]
  - RHABDOMYOLYSIS [None]
